FAERS Safety Report 5134213-0 (Version None)
Quarter: 2006Q4

REPORT INFORMATION
  Report Type: 
  Country: None (occurrence: None)
  Receive Date: 20061019
  Receipt Date: 20061006
  Transmission Date: 20070319
  Serious: Yes (Hospitalization)
  Sender: FDA-Public Use
  Company Number: CH200610001310

PATIENT
  Age: 32 Year
  Sex: Male

DRUGS (6)
  1. ZYPREXA [Suspect]
     Indication: PERSONALITY DISORDER
     Dosage: SEE IMAGE
     Route: 048
     Dates: start: 20060711, end: 20060728
  2. ZYPREXA [Suspect]
     Indication: PERSONALITY DISORDER
     Dosage: SEE IMAGE
     Route: 048
     Dates: start: 20060814, end: 20060815
  3. HEROIN (DIAMORPHINE) [Concomitant]
  4. OXAZEPAM [Concomitant]
  5. CLONAZEPAM [Concomitant]
  6. CLOZAPINE [Concomitant]

REACTIONS (2)
  - CATATONIA [None]
  - NEUROLEPTIC MALIGNANT SYNDROME [None]
